FAERS Safety Report 5763115-1 (Version None)
Quarter: 2008Q2

REPORT INFORMATION
  Report Type: 
  Country: None (occurrence: None)
  Receive Date: 20080609
  Receipt Date: 20080528
  Transmission Date: 20081010
  Serious: Yes (Death, Hospitalization)
  Sender: FDA-Public Use
  Company Number: US-PFIZER INC-2008045531

PATIENT
  Sex: Female

DRUGS (4)
  1. DIFLUCAN [Suspect]
     Indication: VAGINAL DISCHARGE
  2. DIFLUCAN [Suspect]
     Indication: ORAL CANDIDIASIS
  3. PREDNISONE TAB [Suspect]
     Indication: HEPATIC ENZYME INCREASED
  4. KEPPRA [Suspect]
     Indication: CONVULSION

REACTIONS (5)
  - FLUSHING [None]
  - HYPOTENSION [None]
  - HYPOTHERMIA [None]
  - MULTI-ORGAN FAILURE [None]
  - TOXIC EPIDERMAL NECROLYSIS [None]
